FAERS Safety Report 11938537 (Version 1)
Quarter: 2016Q1

REPORT INFORMATION
  Report Type: Spontaneous
  Country: None (occurrence: None)
  Receive Date: 20160120
  Receipt Date: 20160120
  Transmission Date: 20160526
  Serious: Yes (Life-Threatening)
  Sender: FDA-Public Use
  Company Number: None

PATIENT

DRUGS (2)
  1. METHOHEXITAL [Suspect]
     Active Substance: METHOHEXITAL
  2. FENTANYL. [Suspect]
     Active Substance: FENTANYL

REACTIONS (2)
  - Procedural complication [None]
  - Oxygen saturation decreased [None]
